FAERS Safety Report 7572050-8 (Version None)
Quarter: 2011Q2

REPORT INFORMATION
  Report Type: 
  Country: None (occurrence: None)
  Receive Date: 20110624
  Receipt Date: 20110607
  Transmission Date: 20111010
  Serious: Yes (Life-Threatening, Hospitalization)
  Sender: FDA-Public Use
  Company Number: FR-VERTEX PHARMACEUTICALS INC.-AE-2011-000172

PATIENT
  Sex: Female
  Weight: 1.484 kg

DRUGS (4)
  1. NEUPOGEN [Concomitant]
     Dates: start: 20110412
  2. PEGINTERFERON ALFA-2A [Concomitant]
     Indication: HEPATITIS C
     Route: 058
     Dates: start: 20110322, end: 20110501
  3. RIBAVIRIN [Concomitant]
     Indication: HEPATITIS C
     Route: 048
     Dates: start: 20110322, end: 20110501
  4. VX-950 [Suspect]
     Indication: HEPATITIS C
     Route: 048
     Dates: start: 20110322, end: 20110501

REACTIONS (3)
  - BONE MARROW FAILURE [None]
  - PERITONEAL INFECTION [None]
  - HEPATIC CIRRHOSIS [None]
